FAERS Safety Report 17783384 (Version 2)
Quarter: 2020Q3

REPORT INFORMATION
  Report Type: Spontaneous
  Country: US (occurrence: US)
  Receive Date: 20200514
  Receipt Date: 20200804
  Transmission Date: 20201102
  Serious: No
  Sender: FDA-Public Use
  Company Number: US-PFIZER INC-2020192882

PATIENT
  Age: 58 Year
  Sex: Female

DRUGS (2)
  1. XELJANZ XR [Suspect]
     Active Substance: TOFACITINIB CITRATE
     Dosage: 11 MG
     Dates: start: 20170501
  2. XELJANZ XR [Suspect]
     Active Substance: TOFACITINIB CITRATE
     Dosage: UNK, 11 MG
     Dates: start: 20200101, end: 20200705

REACTIONS (3)
  - Drug ineffective [Unknown]
  - Condition aggravated [Unknown]
  - Pain [Unknown]

NARRATIVE: CASE EVENT DATE: 202001
